FAERS Safety Report 15342754 (Version 3)
Quarter: 2019Q2

REPORT INFORMATION
  Report Type: Report from Study
  Country: US (occurrence: US)
  Receive Date: 20180903
  Receipt Date: 20190502
  Transmission Date: 20190711
  Serious: No
  Sender: FDA-Public Use
  Company Number: PHEH2018US035827

PATIENT
  Sex: Female

DRUGS (1)
  1. GILENYA [Suspect]
     Active Substance: FINGOLIMOD HYDROCHLORIDE
     Indication: MULTIPLE SCLEROSIS
     Dosage: 0.5 MG, QD
     Route: 048
     Dates: start: 20170527

REACTIONS (9)
  - Dizziness [Unknown]
  - Memory impairment [Unknown]
  - Visual impairment [Unknown]
  - Fall [Unknown]
  - Stress [Unknown]
  - Dysgraphia [Unknown]
  - Asthenia [Unknown]
  - Hypoacusis [Unknown]
  - Gait inability [Unknown]
